FAERS Safety Report 22361340 (Version 2)
Quarter: 2024Q1

REPORT INFORMATION
  Report Type: Spontaneous
  Country: US (occurrence: US)
  Receive Date: 20230524
  Receipt Date: 20240116
  Transmission Date: 20240409
  Serious: Yes (Other)
  Sender: FDA-Public Use
  Company Number: US-UCBSA-2023026308

PATIENT
  Sex: Female
  Weight: 76.19 kg

DRUGS (5)
  1. CIMZIA [Suspect]
     Active Substance: CERTOLIZUMAB PEGOL
     Indication: Axial spondyloarthritis
     Dosage: (200MGX2)400 MILLIGRAM AT WEEKS 0, 2, 4 AND THEN 200 MG EVERY 2 WEEKS
     Route: 058
  2. CIMZIA [Suspect]
     Active Substance: CERTOLIZUMAB PEGOL
     Dosage: 200 MILLIGRAM, EV 2 WEEKS(QOW)
     Route: 058
  3. SYNTHROID [Concomitant]
     Active Substance: LEVOTHYROXINE SODIUM
     Indication: Product used for unknown indication
     Dosage: UNK
  4. QBREXZA [Concomitant]
     Active Substance: GLYCOPYRRONIUM TOSYLATE
     Indication: Product used for unknown indication
     Dosage: 2.4% TOWELETTE
  5. GLYCOPYRROLATE [Concomitant]
     Active Substance: GLYCOPYRROLATE
     Indication: Product used for unknown indication
     Dosage: 1 MILLIGRAM

REACTIONS (3)
  - Loss of consciousness [Unknown]
  - Injection site pain [Unknown]
  - Illness [Unknown]
